FAERS Safety Report 5833972-9 (Version None)
Quarter: 2008Q3

REPORT INFORMATION
  Report Type: 
  Country: None (occurrence: None)
  Receive Date: 20080805
  Receipt Date: 20080721
  Transmission Date: 20090109
  Serious: Yes (Hospitalization)
  Sender: FDA-Public Use
  Company Number: FR-ELI_LILLY_AND_COMPANY-FR200805001298

PATIENT
  Sex: Female
  Weight: 99 kg

DRUGS (8)
  1. BYETTA [Suspect]
     Indication: TYPE 2 DIABETES MELLITUS
     Dosage: 5 UG, 2/D
     Route: 058
     Dates: start: 20080429, end: 20080504
  2. GLUCOPHAGE [Concomitant]
     Indication: TYPE 2 DIABETES MELLITUS
     Dosage: 3 D/F, DAILY (1/D)
     Route: 048
  3. AMARYL [Concomitant]
     Indication: TYPE 2 DIABETES MELLITUS
     Dosage: 6 MG, UNKNOWN
     Route: 065
  4. AMARYL [Concomitant]
     Dosage: 4 MG, DAILY (1/D)
     Route: 048
  5. COAPROVEL [Concomitant]
     Indication: HYPERTENSION
     Dosage: 300 MG, DAILY (1/D)
     Route: 048
  6. TARDYFERON [Concomitant]
     Dosage: 2 D/F, DAILY (1/D)
     Route: 048
  7. CRESTOR [Concomitant]
     Indication: HYPERCHOLESTEROLAEMIA
     Dosage: 5 MG, DAILY (1/D)
     Route: 048
     Dates: start: 20080429
  8. MOTILIUM [Concomitant]
     Indication: NAUSEA
     Dosage: 3 D/F, DAILY (1/D)
     Route: 048
     Dates: start: 20080501

REACTIONS (13)
  - CARDIAC FAILURE [None]
  - DEHYDRATION [None]
  - DIABETIC KETOACIDOSIS [None]
  - DIARRHOEA [None]
  - DISTURBANCE IN ATTENTION [None]
  - GENERAL PHYSICAL HEALTH DETERIORATION [None]
  - HYPOVOLAEMIC SHOCK [None]
  - LACTIC ACIDOSIS [None]
  - METABOLIC ACIDOSIS [None]
  - NAUSEA [None]
  - RENAL FAILURE ACUTE [None]
  - VERTIGO [None]
  - VOMITING [None]
